FAERS Safety Report 15175827 (Version 1)
Quarter: 2018Q3

REPORT INFORMATION
  Report Type: Spontaneous
  Country: GB (occurrence: GB)
  Receive Date: 20180720
  Receipt Date: 20180720
  Transmission Date: 20181010
  Serious: Yes (Hospitalization)
  Sender: FDA-Public Use
  Company Number: GB-TEVA-2018-GB-929327

PATIENT
  Age: 90 Year
  Sex: Female
  Weight: 36 kg

DRUGS (12)
  1. RANITIDINE. [Concomitant]
     Active Substance: RANITIDINE
  2. MACROGOL [Suspect]
     Active Substance: POLYETHYLENE GLYCOLS
     Indication: CONSTIPATION
     Dosage: 2 DOSAGE FORMS DAILY; SACHET
     Route: 048
     Dates: end: 20180615
  3. ACETYLSALICYLIC ACID [Concomitant]
     Active Substance: ASPIRIN
  4. TRIMETHOPRIM. [Concomitant]
     Active Substance: TRIMETHOPRIM
  5. FUROSEMIDE. [Suspect]
     Active Substance: FUROSEMIDE
     Dosage: 40 MILLIGRAM DAILY; IN THE MORNING
     Route: 048
     Dates: end: 20180615
  6. AMILORIDE [Suspect]
     Active Substance: AMILORIDE
     Dosage: 5 MILLIGRAM DAILY;
     Route: 048
     Dates: end: 20180615
  7. VITAMIN B COMPLEX STRONG [Concomitant]
  8. BISACODYL. [Suspect]
     Active Substance: BISACODYL
     Indication: CONSTIPATION
     Dosage: 5 MILLIGRAM DAILY; AT NIGHT
     Route: 048
  9. THIAMINE [Concomitant]
     Active Substance: THIAMINE
  10. DOCUSATE [Suspect]
     Active Substance: DOCUSATE
     Indication: CONSTIPATION
     Dosage: 200 MILLIGRAM DAILY;
     Route: 048
     Dates: end: 20180615
  11. ADCAL?D3 [Concomitant]
     Active Substance: CALCIUM CARBONATE\CHOLECALCIFEROL
  12. PARACETAMOL [Concomitant]
     Active Substance: ACETAMINOPHEN

REACTIONS (4)
  - Hypokalaemia [Recovered/Resolved]
  - Hypophosphataemia [Recovered/Resolved]
  - Diarrhoea [Recovering/Resolving]
  - Malaise [Recovering/Resolving]

NARRATIVE: CASE EVENT DATE: 20180614
